FAERS Safety Report 8408890-2 (Version None)
Quarter: 2012Q2

REPORT INFORMATION
  Report Type: 
  Country: None (occurrence: None)
  Receive Date: 20120604
  Receipt Date: 20120309
  Transmission Date: 20120825
  Serious: No
  Sender: FDA-Public Use
  Company Number: US-NOVEN-12US004240

PATIENT
  Sex: Male
  Weight: 34.921 kg

DRUGS (1)
  1. DAYTRANA [Suspect]
     Indication: ATTENTION DEFICIT/HYPERACTIVITY DISORDER
     Dosage: 10 MG QD, NO WEEKENDS
     Route: 062
     Dates: start: 20100101

REACTIONS (4)
  - APPLICATION SITE IRRITATION [None]
  - APPLICATION SITE ERYTHEMA [None]
  - DISTURBANCE IN ATTENTION [None]
  - DRUG ADMINISTERED AT INAPPROPRIATE SITE [None]
